FAERS Safety Report 24163754 (Version 1)
Quarter: 2024Q3

REPORT INFORMATION
  Report Type: Spontaneous
  Country: CN (occurrence: CN)
  Receive Date: 20240801
  Receipt Date: 20240801
  Transmission Date: 20241017
  Serious: Yes (Other)
  Sender: GALDERMA
  Company Number: CN-GALDERMA-CN2024011804

PATIENT

DRUGS (5)
  1. BENZOYL PEROXIDE [Suspect]
     Active Substance: BENZOYL PEROXIDE
     Indication: Acne
     Dosage: 0.1 GRAM, QD
     Route: 061
     Dates: start: 20211106, end: 20211111
  2. ADAPALENE [Concomitant]
     Active Substance: ADAPALENE
     Indication: Acne
     Dosage: 0.1 GRAM, QD
     Route: 061
     Dates: start: 20211106, end: 20211111
  3. AZITHROMYCIN [Concomitant]
     Active Substance: AZITHROMYCIN
     Indication: Acne
     Dosage: 0.5 GRAM, QD
     Route: 048
     Dates: start: 20211106, end: 20211111
  4. AZITHROMYCIN [Concomitant]
     Active Substance: AZITHROMYCIN
     Dosage: 0.5 GRAM, QD
     Route: 048
     Dates: start: 20211113, end: 20211123
  5. ISOTRETINOIN [Concomitant]
     Active Substance: ISOTRETINOIN
     Indication: Acne
     Dosage: 10 MILLIGRAM, BID
     Route: 048
     Dates: start: 20211106, end: 20211111

REACTIONS (5)
  - Skin swelling [Recovering/Resolving]
  - Application site dryness [Recovering/Resolving]
  - Erythema [Recovering/Resolving]
  - Skin exfoliation [Recovering/Resolving]
  - Pruritus [Recovered/Resolved]

NARRATIVE: CASE EVENT DATE: 20211109
